FAERS Safety Report 16367296 (Version 1)
Quarter: 2019Q2

REPORT INFORMATION
  Report Type: Spontaneous
  Country: US (occurrence: US)
  Receive Date: 20190422
  Receipt Date: 20190422
  Transmission Date: 20190711
  Serious: Yes (Hospitalization)
  Sender: FDA-Public Use
  Company Number: None

PATIENT
  Age: 52 Year
  Sex: Male

DRUGS (1)
  1. LITHIUM. [Suspect]
     Active Substance: LITHIUM
     Indication: BIPOLAR I DISORDER
     Dates: start: 20181027, end: 20181110

REACTIONS (4)
  - Dialysis [None]
  - Accidental exposure to product [None]
  - Toxicity to various agents [None]
  - Acute kidney injury [None]

NARRATIVE: CASE EVENT DATE: 20181110
